FAERS Safety Report 7555699-8 (Version None)
Quarter: 2011Q2

REPORT INFORMATION
  Report Type: 
  Country: None (occurrence: None)
  Receive Date: 20110617
  Receipt Date: 20110614
  Transmission Date: 20111010
  Serious: Yes (Hospitalization)
  Sender: FDA-Public Use
  Company Number: FR-MERCK-1106FRA00064

PATIENT
  Age: 80 Year
  Sex: Male
  Weight: 84 kg

DRUGS (2)
  1. LANTUS [Concomitant]
     Route: 051
     Dates: end: 20101216
  2. JANUMET [Suspect]
     Indication: TYPE 2 DIABETES MELLITUS
     Route: 048
     Dates: start: 20101008, end: 20101216

REACTIONS (1)
  - CHOLECYSTITIS [None]
